FAERS Safety Report 18053649 (Version 1)
Quarter: 2020Q3

REPORT INFORMATION
  Report Type: Spontaneous
  Country: US (occurrence: US)
  Receive Date: 20200721
  Receipt Date: 20200721
  Transmission Date: 20201103
  Serious: Yes (Death)
  Sender: FDA-Public Use
  Company Number: None

PATIENT
  Age: 45 Year
  Sex: Female
  Weight: 98.55 kg

DRUGS (17)
  1. LIDOCAINE?PRILOCAINE [Concomitant]
     Active Substance: LIDOCAINE\PRILOCAINE
  2. ACETMINOPHEN [Concomitant]
  3. TUMS [Concomitant]
     Active Substance: CALCIUM CARBONATE
  4. PREVACID [Concomitant]
     Active Substance: LANSOPRAZOLE
  5. LEVOTHYROXINE. [Concomitant]
     Active Substance: LEVOTHYROXINE
  6. FEMARA [Concomitant]
     Active Substance: LETROZOLE
  7. LOPERAMIDE [Concomitant]
     Active Substance: LOPERAMIDE
  8. TAMSULOSIN [Concomitant]
     Active Substance: TAMSULOSIN
  9. EVEROLIMUS. [Suspect]
     Active Substance: EVEROLIMUS
     Indication: NEOPLASM MALIGNANT
     Route: 048
     Dates: start: 20200629, end: 20200721
  10. ONDANSETRON [Concomitant]
     Active Substance: ONDANSETRON
  11. TURMERIC [Concomitant]
     Active Substance: HERBALS\TURMERIC
  12. KLOR?CON M20 [Concomitant]
     Active Substance: POTASSIUM CHLORIDE
  13. ELIQUIS [Concomitant]
     Active Substance: APIXABAN
  14. CALCIUM CARBONATE?VITAMIN D3 [Concomitant]
  15. MAGNESIUM GLUCONATE [Concomitant]
     Active Substance: MAGNESIUM GLUCONATE
  16. OXYCODONE [Concomitant]
     Active Substance: OXYCODONE
  17. GINGER OIL. [Concomitant]
     Active Substance: GINGER OIL

REACTIONS (1)
  - Death [None]

NARRATIVE: CASE EVENT DATE: 20200721
